FAERS Safety Report 4826053-4 (Version None)
Quarter: 2005Q4

REPORT INFORMATION
  Report Type: 
  Country: None (occurrence: None)
  Receive Date: 20051014
  Receipt Date: 20050707
  Transmission Date: 20060501
  Serious: No
  Sender: FDA-Public Use
  Company Number: 2005SP001789

PATIENT
  Age: 63 Year
  Sex: Male
  Weight: 73.4827 kg

DRUGS (1)
  1. LUNESTA [Suspect]
     Dosage: 2 MG HS ORAL
     Route: 048
     Dates: start: 20050701

REACTIONS (4)
  - DRUG INEFFECTIVE [None]
  - INSOMNIA [None]
  - PAIN [None]
  - TREMOR [None]
